FAERS Safety Report 5596383-X (Version None)
Quarter: 2007Q4

REPORT INFORMATION
  Report Type: 
  Country: None (occurrence: None)
  Receive Date: 20071219
  Receipt Date: 20061120
  Transmission Date: 20080405
  Serious: No
  Sender: FDA-Public Use
  Company Number: NASDS-06-0557

PATIENT

DRUGS (1)
  1. NAROPIN [Suspect]
     Indication: NERVE BLOCK

REACTIONS (3)
  - HYPOTENSION [None]
  - INADEQUATE ANALGESIA [None]
  - PHARMACEUTICAL PRODUCT COMPLAINT [None]
